FAERS Safety Report 5117168-4 (Version None)
Quarter: 2006Q3

REPORT INFORMATION
  Report Type: 
  Country: None (occurrence: None)
  Receive Date: 20060927
  Receipt Date: 20060927
  Transmission Date: 20061208
  Serious: Yes (Life-Threatening, Hospitalization)
  Sender: FDA-Public Use
  Company Number: None

PATIENT
  Age: 27 Year
  Sex: Male
  Weight: 95.2554 kg

DRUGS (1)
  1. CELECOXIB 200 MG PFIZER [Suspect]
     Indication: INTERVERTEBRAL DISC PROTRUSION
     Dosage: 200 MG BID PRN PO
     Route: 048
     Dates: start: 20050801, end: 20060923

REACTIONS (12)
  - BLOOD PRESSURE DECREASED [None]
  - DYSPNOEA [None]
  - HEART RATE DECREASED [None]
  - HYPERHIDROSIS [None]
  - OEDEMA PERIPHERAL [None]
  - PALMAR ERYTHEMA [None]
  - PRURITUS [None]
  - SELF-MEDICATION [None]
  - SPEECH DISORDER [None]
  - SWELLING FACE [None]
  - SWOLLEN TONGUE [None]
  - URTICARIA GENERALISED [None]
